FAERS Safety Report 22311449 (Version 1)
Quarter: 2023Q2

REPORT INFORMATION
  Report Type: Spontaneous
  Country: US (occurrence: US)
  Receive Date: 20230511
  Receipt Date: 20230511
  Transmission Date: 20230721
  Serious: No
  Sender: FDA-Public Use
  Company Number: US-009507513-2305USA003259

PATIENT

DRUGS (2)
  1. M-M-R II [Suspect]
     Active Substance: MEASLES VIRUS STRAIN ENDERS^ ATTENUATED EDMONSTON LIVE ANTIGEN\MUMPS VIRUS STRAIN B LEVEL JERYL LYNN
     Indication: Prophylaxis
     Dosage: .5 MILLILITER
     Dates: start: 20230428
  2. STERILE DILUENT (WATER) [Suspect]
     Active Substance: WATER
     Indication: Medication dilution
     Dosage: UNK
     Dates: start: 20230428

REACTIONS (2)
  - Expired product administered [Unknown]
  - No adverse event [Unknown]

NARRATIVE: CASE EVENT DATE: 20230428
